FAERS Safety Report 4951483-X (Version None)
Quarter: 2006Q1

REPORT INFORMATION
  Report Type: 
  Country: None (occurrence: None)
  Receive Date: 20060317
  Receipt Date: 20060303
  Transmission Date: 20060701
  Serious: Yes (Life-Threatening, Hospitalization, Other)
  Sender: FDA-Public Use
  Company Number: US200603000892

PATIENT
  Age: 37 Year
  Sex: Female

DRUGS (3)
  1. HUMAN REGULAR(HUMAN INSULIN (RDNA ORIGIN) REGULAR UNKNOWN FORMULATION) [Suspect]
     Dosage: SEE IMAGE
     Dates: start: 19990101
  2. HUMAN REGULAR(HUMAN INSULIN (RDNA ORIGIN) REGULAR UNKNOWN FORMULATION) [Suspect]
     Dosage: SEE IMAGE
     Dates: start: 20050901
  3. INSULIN [Suspect]
     Indication: DIABETES MELLITUS

REACTIONS (8)
  - ANAPHYLACTIC REACTION [None]
  - ASTHMA [None]
  - DIABETES MELLITUS INADEQUATE CONTROL [None]
  - DRUG HYPERSENSITIVITY [None]
  - DRUG INEFFECTIVE [None]
  - PHARMACEUTICAL PRODUCT COMPLAINT [None]
  - RHABDOMYOLYSIS [None]
  - TREMOR [None]
